FAERS Safety Report 5753061-1 (Version None)
Quarter: 2008Q2

REPORT INFORMATION
  Report Type: 
  Country: None (occurrence: None)
  Receive Date: 20080527
  Receipt Date: 20080514
  Transmission Date: 20081010
  Serious: Yes (Life-Threatening, Hospitalization)
  Sender: FDA-Public Use
  Company Number: DSA_31878_2008

PATIENT
  Age: 70 Year
  Sex: Male

DRUGS (3)
  1. ENALAPRIL MALEATE AND HYDROCHLOROTHIAZIDE [Suspect]
     Indication: HYPERTENSION
     Dosage: DF ORAL
     Route: 048
  2. JANUVIA [Suspect]
     Indication: TYPE 2 DIABETES MELLITUS
     Dosage: 100 MG QD ORAL
     Route: 048
     Dates: start: 20080430, end: 20080510
  3. METFORMIN HCL [Suspect]
     Indication: TYPE 2 DIABETES MELLITUS
     Dosage: DF ORAL
     Route: 048
     Dates: end: 20080510

REACTIONS (6)
  - ANURIA [None]
  - DIABETES MELLITUS [None]
  - HAEMODIALYSIS [None]
  - LACTIC ACIDOSIS [None]
  - MALAISE [None]
  - RENAL FAILURE ACUTE [None]
